FAERS Safety Report 6496473-3 (Version None)
Quarter: 2009Q4

REPORT INFORMATION
  Report Type: 
  Country: None (occurrence: None)
  Receive Date: 20091210
  Receipt Date: 20091130
  Transmission Date: 20100525
  Serious: Yes (Death)
  Sender: FDA-Public Use
  Company Number: 001195

PATIENT
  Sex: Male

DRUGS (8)
  1. NEUPRO [Suspect]
     Indication: PARKINSON'S DISEASE
     Dosage: SEE IMAGE
     Route: 062
     Dates: end: 20090511
  2. NEUPRO [Suspect]
     Indication: PARKINSON'S DISEASE
     Dosage: SEE IMAGE
     Route: 062
  3. NEUPRO [Suspect]
     Indication: PARKINSON'S DISEASE
     Dosage: SEE IMAGE
     Route: 062
  4. NEUPRO [Suspect]
     Indication: PARKINSON'S DISEASE
     Dosage: SEE IMAGE
     Route: 062
     Dates: start: 20090301
  5. STALEVO 100 [Suspect]
     Indication: PARKINSON'S DISEASE
     Dosage: (100 MG 5X/DAY), (50 MG 5X/DAY)
     Dates: end: 20081001
  6. STALEVO 100 [Suspect]
     Indication: PARKINSON'S DISEASE
     Dosage: (100 MG 5X/DAY), (50 MG 5X/DAY)
     Dates: start: 20081001, end: 20090511
  7. MOVICOL /01749801/ [Concomitant]
  8. MADOPARK QUICK [Concomitant]

REACTIONS (12)
  - ASTHENIA [None]
  - CARDIOMEGALY [None]
  - CONFUSIONAL STATE [None]
  - DRUG INEFFECTIVE [None]
  - HALLUCINATION [None]
  - HYPERTENSION [None]
  - LEFT VENTRICULAR HYPERTROPHY [None]
  - NERVOUS SYSTEM DISORDER [None]
  - PETIT MAL EPILEPSY [None]
  - PULMONARY INFARCTION [None]
  - PULMONARY THROMBOSIS [None]
  - TREMOR [None]
